FAERS Safety Report 7940897-1 (Version None)
Quarter: 2011Q4

REPORT INFORMATION
  Report Type: 
  Country: None (occurrence: None)
  Receive Date: 20111122
  Receipt Date: 20111109
  Transmission Date: 20120403
  Serious: Yes (Hospitalization)
  Sender: FDA-Public Use
  Company Number: 1105053

PATIENT
  Age: 69 Year
  Sex: Male

DRUGS (8)
  1. IRINOTECAN HCL [Suspect]
     Indication: COLON CANCER
     Dosage: 113.2 MG, INTRAVENOUS
     Route: 042
     Dates: start: 20110920, end: 20110927
  2. FLUOROURACIL [Suspect]
     Indication: COLON CANCER
     Dosage: 2831 MG, INTRAVENOUS
     Route: 042
     Dates: start: 20110920, end: 20110927
  3. LEVOLEUCOVORIN CALCIUM [Suspect]
     Indication: COLON CANCER
     Dosage: 353.9 MG, INTRAVENOUS
     Route: 042
     Dates: start: 20110920, end: 20110927
  4. PANTOPRAZOLE SODIUM [Concomitant]
  5. DECADRON [Concomitant]
  6. ALLOPURINOL [Concomitant]
  7. ZOFRAN [Concomitant]
  8. SIMVASTATIN [Concomitant]

REACTIONS (4)
  - DIARRHOEA [None]
  - LEUKOPENIA [None]
  - FEBRILE NEUTROPENIA [None]
  - DYSPHAGIA [None]
